FAERS Safety Report 14673563 (Version 2)
Quarter: 2019Q2

REPORT INFORMATION
  Report Type: Spontaneous
  Country: US (occurrence: US)
  Receive Date: 20180323
  Receipt Date: 20190614
  Transmission Date: 20190711
  Serious: Yes (Other)
  Sender: FDA-Public Use
  Company Number: US-ELI_LILLY_AND_COMPANY-US201803005042

PATIENT
  Sex: Male

DRUGS (6)
  1. LANTUS [Suspect]
     Active Substance: INSULIN GLARGINE
     Indication: INSULIN RESISTANCE
  2. HUMALOG [Suspect]
     Active Substance: INSULIN LISPRO
     Indication: LATENT AUTOIMMUNE DIABETES IN ADULTS
     Dosage: UNK, SLIDING SCALE
     Route: 065
     Dates: start: 20180120
  3. METFORMIN [Concomitant]
     Active Substance: METFORMIN HYDROCHLORIDE
     Indication: LATENT AUTOIMMUNE DIABETES IN ADULTS
     Dosage: 1000 MG, BID
     Route: 065
  4. HUMALOG [Suspect]
     Active Substance: INSULIN LISPRO
     Indication: INSULIN RESISTANCE
     Dosage: UNK, SLIDING SCALE
     Route: 065
  5. HUMALOG [Suspect]
     Active Substance: INSULIN LISPRO
     Dosage: 3 U, BID (BEFORE LUNCH AND SUPPER)
     Route: 065
  6. LANTUS [Suspect]
     Active Substance: INSULIN GLARGINE
     Indication: LATENT AUTOIMMUNE DIABETES IN ADULTS
     Dosage: 10 U, DAILY
     Route: 065

REACTIONS (4)
  - Gait disturbance [Unknown]
  - Hypoglycaemia [Not Recovered/Not Resolved]
  - Blood glucose increased [Unknown]
  - Hypoglycaemia [Recovered/Resolved]

NARRATIVE: CASE EVENT DATE: 20180120
